FAERS Safety Report 8520975-9 (Version None)
Quarter: 2012Q3

REPORT INFORMATION
  Report Type: 
  Country: None (occurrence: None)
  Receive Date: 20120706
  Receipt Date: 20120625
  Transmission Date: 20120928
  Serious: Yes (Hospitalization)
  Sender: FDA-Public Use
  Company Number: 2012P1045036

PATIENT
  Age: 71 Year
  Sex: Female
  Weight: 56.6996 kg

DRUGS (5)
  1. LISINOPRIL AND HYDROCHLOROTHIAZIDE [Suspect]
     Indication: HYPERTENSION
     Dosage: 20/12.5 MG;QD;PO
     Route: 048
     Dates: start: 20120601
  2. LISINOPRIL AND HYDROCHLOROTHIAZIDE [Suspect]
     Indication: HYPERTENSION
     Dosage: 20/12.5 MG;QD;PO
     Route: 048
     Dates: start: 20100101, end: 20120413
  3. BISOPROLOL FUMARATE [Suspect]
     Dosage: 5 MG;QD;PO
     Route: 048
     Dates: end: 20120413
  4. XANAX [Concomitant]
  5. AMLODIPINE BESYLATE [Suspect]
     Indication: HYPERTENSION
     Dosage: 2.5 MG;HS;PO
     Route: 048
     Dates: end: 20120413

REACTIONS (8)
  - DYSPNOEA [None]
  - PALLOR [None]
  - HAEMOGLOBIN DECREASED [None]
  - BLOOD BLISTER [None]
  - INTESTINAL HAEMORRHAGE [None]
  - GAIT DISTURBANCE [None]
  - ORAL PAIN [None]
  - HYPOTENSION [None]
